FAERS Safety Report 7489826-8 (Version None)
Quarter: 2011Q2

REPORT INFORMATION
  Report Type: 
  Country: None (occurrence: None)
  Receive Date: 20110519
  Receipt Date: 20110510
  Transmission Date: 20111010
  Serious: No
  Sender: FDA-Public Use
  Company Number: US-BIOGENIDEC-2011BI018288

PATIENT
  Sex: Female

DRUGS (2)
  1. AVONEX [Suspect]
     Indication: MULTIPLE SCLEROSIS
     Route: 030
     Dates: start: 20010420
  2. AVONEX [Suspect]
     Route: 030
     Dates: end: 20100517

REACTIONS (3)
  - MULTIPLE SCLEROSIS RELAPSE [None]
  - ERYTHROPENIA [None]
  - INFLUENZA LIKE ILLNESS [None]
